FAERS Safety Report 10748014 (Version 2)
Quarter: 2015Q1

REPORT INFORMATION
  Report Type: Spontaneous
  Country: ES (occurrence: None)
  Receive Date: 20150127
  Receipt Date: 20150209
  Transmission Date: 20150721
  Serious: Yes (Other)
  Sender: FDA-Public Use
  Company Number: 20150129

PATIENT
  Age: 57 Year
  Sex: Female

DRUGS (12)
  1. METHOTREXATE SODIUM (METHOTREXATE SODIUM) [Suspect]
     Active Substance: METHOTREXATE SODIUM
     Dosage: SOLUTION FOR INJECTION, 1 DOSAGE FORM IN WEEK
  2. ADOLONTA (TRAMADOL HYDROCHLORIDE) [Concomitant]
  3. ENALAPRIL [Concomitant]
     Active Substance: ENALAPRIL
  4. DIPROPHYLLINE [Concomitant]
     Active Substance: DYPHYLLINE
  5. METAMIZOLE SODIUM [Concomitant]
     Active Substance: METAMIZOLE SODIUM
  6. ALGIDOL (PARACETAMOL) [Concomitant]
  7. ASCORBIC ACID. [Concomitant]
     Active Substance: ASCORBIC ACID
  8. EUTIROX (LEVOTHYROXINE) [Concomitant]
  9. ATENOLOL. [Concomitant]
     Active Substance: ATENOLOL
  10. METOJECT (METHOTREXATE DISODIUM) [Suspect]
     Active Substance: METHOTREXATE SODIUM
     Dosage: SOLUTION FOR INJECTION IN PRE-FILLED SYRINGE
  11. CODEINE PHOSPHATE [Concomitant]
     Active Substance: CODEINE PHOSPHATE
  12. ACFOL (FOLIC ACID) [Concomitant]

REACTIONS (9)
  - Blood pressure fluctuation [None]
  - Peripheral swelling [None]
  - Blood pressure increased [None]
  - Injection site pain [None]
  - Dizziness [None]
  - Hypersensitivity [None]
  - Epistaxis [None]
  - Pain in extremity [None]
  - Abasia [None]
